FAERS Safety Report 24110107 (Version 1)
Quarter: 2024Q3

REPORT INFORMATION
  Report Type: Spontaneous
  Country: CA (occurrence: CA)
  Receive Date: 20240718
  Receipt Date: 20240718
  Transmission Date: 20241016
  Serious: Yes (Other)
  Sender: CELLTRION
  Company Number: CA-CELLTRION INC.-2024CA016898

PATIENT

DRUGS (1)
  1. TRASTUZUMAB [Suspect]
     Active Substance: TRASTUZUMAB
     Indication: HER2 positive breast cancer
     Dosage: 335.0 MILLIGRAM, 1 EVERY 3 WEEKS
     Route: 042

REACTIONS (7)
  - Facial discomfort [Unknown]
  - Flushing [Unknown]
  - Back pain [Unknown]
  - Dyspnoea [Unknown]
  - Somnolence [Unknown]
  - Off label use [Unknown]
  - Underdose [Unknown]
